FAERS Safety Report 10683615 (Version 1)
Quarter: 2014Q4

REPORT INFORMATION
  Report Type: Spontaneous
  Country: IT (occurrence: IT)
  Receive Date: 20141230
  Receipt Date: 20141230
  Transmission Date: 20150529
  Serious: Yes (Other)
  Sender: FDA-Public Use
  Company Number: IT-FRI-1000073386

PATIENT
  Age: 80 Year
  Sex: Female

DRUGS (3)
  1. BLOPRESID [Concomitant]
     Active Substance: CANDESARTAN CILEXETIL\HYDROCHLOROTHIAZIDE
  2. CARDURA [Concomitant]
     Active Substance: DOXAZOSIN MESYLATE
  3. NEBIVOLOL [Suspect]
     Active Substance: NEBIVOLOL
     Indication: HYPERTENSION
     Dosage: 5 MG
     Route: 048
     Dates: end: 2014

REACTIONS (4)
  - Metamorphopsia [Unknown]
  - Diplopia [Unknown]
  - Skin reaction [Unknown]
  - Headache [Unknown]

NARRATIVE: CASE EVENT DATE: 20141006
